FAERS Safety Report 9104565 (Version 7)
Quarter: 2014Q1

REPORT INFORMATION
  Report Type: Spontaneous
  Country: US (occurrence: US)
  Receive Date: 20130220
  Receipt Date: 20140129
  Transmission Date: 20141002
  Serious: No
  Sender: FDA-Public Use
  Company Number: US-PFIZER INC-2013061071

PATIENT
  Age: 44 Year
  Sex: Male

DRUGS (4)
  1. XALKORI [Suspect]
     Indication: LUNG NEOPLASM MALIGNANT
     Dosage: 250 MG, 2X/DAY
     Route: 048
     Dates: start: 20120226
  2. XALKORI [Suspect]
     Dosage: UNK
     Dates: end: 20131223
  3. XGEVA [Concomitant]
     Indication: METASTASES TO BONE
     Dosage: 120 G, CYCLIC, EVERY 28 DAYS
     Dates: start: 201202
  4. CITRACAL S [Concomitant]
     Indication: BLOOD CALCIUM DECREASED
     Dosage: 1 DF, 2X/DAY
     Dates: start: 201202

REACTIONS (13)
  - Nausea [Recovered/Resolved]
  - Visual impairment [Not Recovered/Not Resolved]
  - Rash pustular [Unknown]
  - Dyspepsia [Recovered/Resolved]
  - Paraesthesia [Not Recovered/Not Resolved]
  - Oedema peripheral [Unknown]
  - Hepatotoxicity [Recovered/Resolved]
  - Liver function test abnormal [Recovered/Resolved]
  - Synovial rupture [Unknown]
  - Face oedema [Unknown]
  - Disease progression [Unknown]
  - Lung neoplasm malignant [Unknown]
  - Rash [Unknown]
